FAERS Safety Report 17332149 (Version 2)
Quarter: 2020Q1

REPORT INFORMATION
  Report Type: Spontaneous
  Country: JP (occurrence: JP)
  Receive Date: 20200127
  Receipt Date: 20200303
  Transmission Date: 20200409
  Serious: Yes (Hospitalization)
  Sender: FDA-Public Use
  Company Number: JP-DSJP-DSJ-2019-151278

PATIENT

DRUGS (11)
  1. LIXIANA OD TABLETS [Suspect]
     Active Substance: EDOXABAN TOSYLATE
     Dosage: 15MG/DAY
     Route: 065
     Dates: start: 20190523, end: 20190918
  2. LIXIANA OD TABLETS [Suspect]
     Active Substance: EDOXABAN TOSYLATE
     Dosage: 15MG/DAY
     Route: 065
     Dates: start: 20190423, end: 20190513
  3. NEXIUM [Suspect]
     Active Substance: ESOMEPRAZOLE MAGNESIUM
     Dosage: UNK
     Route: 065
     Dates: start: 20180529, end: 20180612
  4. EDIROL [Concomitant]
     Active Substance: ELDECALCITOL
     Dosage: UNK
     Route: 065
  5. LIXIANA OD TABLETS [Suspect]
     Active Substance: EDOXABAN TOSYLATE
     Dosage: 15MG/DAY
     Route: 065
     Dates: start: 20191107, end: 20191224
  6. ELIQUIS [Suspect]
     Active Substance: APIXABAN
     Dosage: 5MG/DAY
     Route: 065
     Dates: start: 20180529, end: 20180612
  7. LIXIANA OD TABLETS [Suspect]
     Active Substance: EDOXABAN TOSYLATE
     Dosage: 15MG/DAY
     Route: 065
     Dates: start: 20190924, end: 20191031
  8. IRON [Concomitant]
     Active Substance: IRON
     Dosage: UNK
     Route: 065
  9. TEPRENONE [Concomitant]
     Active Substance: TEPRENONE
     Dosage: UNK
     Route: 065
     Dates: start: 20180612
  10. LIXIANA OD TABLETS [Suspect]
     Active Substance: EDOXABAN TOSYLATE
     Dosage: 15MG/DAY
     Route: 065
     Dates: start: 20180710, end: 20190409
  11. LIXIANA OD TABLETS [Suspect]
     Active Substance: EDOXABAN TOSYLATE
     Indication: ATRIAL FIBRILLATION
     Dosage: 30MG/DAY
     Route: 065
     Dates: start: 20180501, end: 20180503

REACTIONS (12)
  - Anaemia [Recovering/Resolving]
  - Gastric antral vascular ectasia [Recovering/Resolving]
  - Hepatic function abnormal [Unknown]
  - Gastrointestinal haemorrhage [Recovering/Resolving]
  - Large intestinal haemorrhage [Recovering/Resolving]
  - Diverticulum [Unknown]
  - Rectal ulcer [Unknown]
  - Melaena [Unknown]
  - Gastrointestinal angiectasia [Recovering/Resolving]
  - Chronic gastritis [Unknown]
  - Underdose [Unknown]
  - Anaemia [Recovering/Resolving]

NARRATIVE: CASE EVENT DATE: 20180502
